FAERS Safety Report 13189377 (Version 1)
Quarter: 2017Q1

REPORT INFORMATION
  Report Type: Spontaneous
  Country: US (occurrence: US)
  Receive Date: 20170204
  Receipt Date: 20170204
  Transmission Date: 20170428
  Serious: Yes (Death)
  Sender: FDA-Public Use
  Company Number: None

PATIENT
  Age: 79 Year
  Sex: Female
  Weight: 59.4 kg

DRUGS (1)
  1. MEMANTINE HYDROCHLORIDE. [Suspect]
     Active Substance: MEMANTINE HYDROCHLORIDE
     Dates: end: 20160217

REACTIONS (15)
  - Confusional state [None]
  - General physical health deterioration [None]
  - Weight decreased [None]
  - Dehydration [None]
  - Lung neoplasm malignant [None]
  - Malignant pleural effusion [None]
  - Decreased appetite [None]
  - Asthenia [None]
  - Dyspnoea [None]
  - Malignant neoplasm progression [None]
  - Metastases to liver [None]
  - Cough [None]
  - Dizziness [None]
  - Metastases to central nervous system [None]
  - Fatigue [None]

NARRATIVE: CASE EVENT DATE: 20160224
